FAERS Safety Report 5079713-7 (Version None)
Quarter: 2006Q3

REPORT INFORMATION
  Report Type: 
  Country: None (occurrence: None)
  Receive Date: 20060808
  Receipt Date: 20060720
  Transmission Date: 20061208
  Serious: Yes (Hospitalization)
  Sender: FDA-Public Use
  Company Number: US200607004925

PATIENT
  Age: 48 Year
  Sex: Female
  Weight: 117.9 kg

DRUGS (1)
  1. ZYPREXA [Suspect]
     Dosage: 10 MG
     Dates: start: 20040201, end: 20041001

REACTIONS (3)
  - DIABETES MELLITUS [None]
  - HYPERGLYCAEMIA [None]
  - LIVER DISORDER [None]
